FAERS Safety Report 4922902-X (Version None)
Quarter: 2006Q1

REPORT INFORMATION
  Report Type: 
  Country: None (occurrence: None)
  Receive Date: 20060224
  Receipt Date: 20060105
  Transmission Date: 20060701
  Serious: Yes (Hospitalization, Disabling, Other)
  Sender: FDA-Public Use
  Company Number: US-MERCK-0601USA00479

PATIENT
  Age: 63 Year
  Sex: Male
  Weight: 84 kg

DRUGS (8)
  1. VIOXX [Suspect]
     Indication: ARTHRITIS
     Route: 048
     Dates: start: 20021101, end: 20030901
  2. VIOXX [Suspect]
     Route: 048
     Dates: start: 20030301
  3. PLAVIX [Concomitant]
     Route: 065
  4. AVAPRO [Concomitant]
     Route: 065
  5. ASPIRIN [Concomitant]
     Route: 065
  6. LIPITOR [Concomitant]
     Route: 065
  7. FOLTX [Concomitant]
     Route: 065
  8. ALLEGRA [Concomitant]
     Route: 065

REACTIONS (6)
  - CARDIAC DISORDER [None]
  - CAROTID ARTERY DISEASE [None]
  - CAROTID BRUIT [None]
  - CORONARY ARTERY DISEASE [None]
  - INTERMITTENT CLAUDICATION [None]
  - MYOCARDIAL INFARCTION [None]
